FAERS Safety Report 9850647 (Version 1)
Quarter: 2013Q4

REPORT INFORMATION
  Report Type: Spontaneous
  Country: US (occurrence: None)
  Receive Date: 20131226
  Receipt Date: 20131226
  Transmission Date: 20140711
  Serious: Yes (Other)
  Sender: FDA-Public Use
  Company Number: PHEH2013US011505

PATIENT
  Sex: Female

DRUGS (1)
  1. DIOVAN 80 MG [Suspect]

REACTIONS (2)
  - Blood pressure increased [None]
  - Drug ineffective [None]
